FAERS Safety Report 6350040-0 (Version None)
Quarter: 2009Q3

REPORT INFORMATION
  Report Type: 
  Country: None (occurrence: None)
  Receive Date: 20090911
  Receipt Date: 20090622
  Transmission Date: 20100115
  Serious: No
  Sender: FDA-Public Use
  Company Number: US-ABBOTT-06P-163-0345850-00

PATIENT
  Sex: Female
  Weight: 109 kg

DRUGS (8)
  1. HUMIRA [Suspect]
     Indication: PSORIATIC ARTHROPATHY
     Route: 058
     Dates: start: 20061003
  2. HUMIRA [Suspect]
     Route: 058
     Dates: start: 20060301, end: 20061003
  3. LEFLUNOMIDE [Concomitant]
     Indication: PSORIATIC ARTHROPATHY
     Route: 048
     Dates: start: 20030101
  4. PREDNISONE [Concomitant]
     Indication: PSORIATIC ARTHROPATHY
     Route: 048
     Dates: start: 20020101
  5. BENICAR [Concomitant]
     Indication: HYPERTENSION
     Route: 048
     Dates: start: 20030101
  6. SULTOPRIDE [Concomitant]
     Indication: HYPERTENSION
     Route: 048
     Dates: start: 20040101
  7. FLUOXETINE HCL [Concomitant]
     Indication: DEPRESSION
     Route: 048
     Dates: start: 20010101
  8. BIRTH CONTROL PILLS [Concomitant]
     Indication: CONTRACEPTION
     Route: 048
     Dates: start: 19870101

REACTIONS (1)
  - INCORRECT DOSE ADMINISTERED [None]
